FAERS Safety Report 11046961 (Version 1)
Quarter: 2015Q2

REPORT INFORMATION
  Report Type: Spontaneous
  Country: US (occurrence: US)
  Receive Date: 20150420
  Receipt Date: 20150420
  Transmission Date: 20150821
  Serious: Yes (Disabling)
  Sender: FDA-Public Use
  Company Number: US-HORIZON-ACT-0061-2015

PATIENT
  Age: 61 Year
  Sex: Female

DRUGS (3)
  1. ACTIMMUNE [Suspect]
     Active Substance: INTERFERON GAMMA-1B
     Indication: FRIEDREICH^S ATAXIA
     Dates: end: 20150322
  2. CELEBREX [Concomitant]
     Active Substance: CELECOXIB
  3. BACLOFEN. [Concomitant]
     Active Substance: BACLOFEN

REACTIONS (8)
  - Feeling abnormal [Recovering/Resolving]
  - Lacrimation increased [Recovering/Resolving]
  - Dry eye [Recovering/Resolving]
  - Feeling of body temperature change [Recovering/Resolving]
  - Nasopharyngitis [Recovering/Resolving]
  - Hyperhidrosis [Recovering/Resolving]
  - Decreased appetite [Recovering/Resolving]
  - Off label use [Unknown]
